FAERS Safety Report 16822892 (Version 1)
Quarter: 2019Q3

REPORT INFORMATION
  Report Type: Report from Study
  Country: US (occurrence: US)
  Receive Date: 20190918
  Receipt Date: 20190918
  Transmission Date: 20191005
  Serious: Yes (Life-Threatening, Hospitalization, Other)
  Sender: FDA-Public Use
  Company Number: US-GLAXOSMITHKLINE-US2019TSO167637

PATIENT
  Sex: Male

DRUGS (1)
  1. NIRAPARIB [Suspect]
     Active Substance: NIRAPARIB
     Indication: PANCREATIC CARCINOMA
     Dosage: 200 MG, QD
     Route: 048

REACTIONS (9)
  - Platelet count decreased [Unknown]
  - Petechiae [Unknown]
  - Mouth haemorrhage [Unknown]
  - Asthenia [Unknown]
  - Fatigue [Unknown]
  - White blood cell count decreased [Unknown]
  - Pancytopenia [Unknown]
  - Anaemia [Unknown]
  - Purpura [Unknown]
